FAERS Safety Report 25005345 (Version 3)
Quarter: 2025Q1

REPORT INFORMATION
  Report Type: Spontaneous
  Country: US (occurrence: US)
  Receive Date: 20250224
  Receipt Date: 20250331
  Transmission Date: 20250409
  Serious: No
  Sender: BAUSCH AND LOMB
  Company Number: US-BAUSCHBL-2025BNL002822

PATIENT
  Sex: Female

DRUGS (1)
  1. XIIDRA [Suspect]
     Active Substance: LIFITEGRAST
     Indication: Product used for unknown indication
     Route: 065

REACTIONS (6)
  - Pain [Unknown]
  - Dry eye [Unknown]
  - Ocular discomfort [Unknown]
  - Eye swelling [Unknown]
  - Eye pain [Unknown]
  - Therapeutic product effect incomplete [Unknown]
